FAERS Safety Report 16939417 (Version 1)
Quarter: 2019Q4

REPORT INFORMATION
  Report Type: Report from Study
  Country: SE (occurrence: SE)
  Receive Date: 20191021
  Receipt Date: 20191021
  Transmission Date: 20200122
  Serious: Yes (Other)
  Sender: FDA-Public Use
  Company Number: SE-TEVA-2019-SE-1125255

PATIENT
  Age: 77 Year
  Sex: Male

DRUGS (2)
  1. LINEZOLID. [Suspect]
     Active Substance: LINEZOLID
     Indication: STAPHYLOCOCCAL INFECTION
     Dosage: 1200 MILLIGRAM DAILY;
     Route: 048
  2. LINEZOLID. [Suspect]
     Active Substance: LINEZOLID
     Indication: ARTHRITIS INFECTIVE

REACTIONS (4)
  - Product use in unapproved indication [Unknown]
  - Anaemia [Recovered/Resolved]
  - Optic neuritis [Recovered/Resolved]
  - Off label use [Unknown]
